FAERS Safety Report 16967621 (Version 2)
Quarter: 2020Q1

REPORT INFORMATION
  Report Type: Spontaneous
  Country: FR (occurrence: FR)
  Receive Date: 20191028
  Receipt Date: 20200110
  Transmission Date: 20200409
  Serious: Yes (Congenital Anomaly, Other)
  Sender: FDA-Public Use
  Company Number: FR-MYLANLABS-2019M1101412

PATIENT
  Sex: Male

DRUGS (2)
  1. DEPAKINE CHRONO [Suspect]
     Active Substance: VALPROATE SODIUM
     Indication: EPILEPSY
     Dosage: 1000 MG, QD
     Route: 064
     Dates: start: 20011109, end: 20020813
  2. LAMOTRIGINE. [Suspect]
     Active Substance: LAMOTRIGINE
     Indication: EPILEPSY
     Dosage: 100 MG, QD
     Route: 064
     Dates: start: 20011109, end: 20020813

REACTIONS (24)
  - Learning disorder [Unknown]
  - Language disorder [Unknown]
  - Auditory disorder [Unknown]
  - Strabismus congenital [Unknown]
  - Eczema [Unknown]
  - Autism spectrum disorder [Unknown]
  - Foetal exposure during pregnancy [Recovered/Resolved]
  - Stereotypy [Unknown]
  - Decreased eye contact [Unknown]
  - Negativism [Unknown]
  - Disinhibition [Unknown]
  - Disturbance in attention [Unknown]
  - Educational problem [Unknown]
  - Social avoidant behaviour [Unknown]
  - Communication disorder [Unknown]
  - Sleep disorder [Unknown]
  - Mood altered [Unknown]
  - Psychomotor skills impaired [Unknown]
  - Cognitive disorder [Unknown]
  - Food allergy [Unknown]
  - Psychomotor hyperactivity [Unknown]
  - Anger [Unknown]
  - Emotional disorder of childhood [Unknown]
  - Aphasia [Unknown]

NARRATIVE: CASE EVENT DATE: 2003
